FAERS Safety Report 5949750-6 (Version None)
Quarter: 2008Q4

REPORT INFORMATION
  Report Type: 
  Country: None (occurrence: None)
  Receive Date: 20081021
  Receipt Date: 20080422
  Transmission Date: 20090506
  Serious: Yes (Other)
  Sender: FDA-Public Use
  Company Number: HQWYE901208DEC05

PATIENT
  Age: 55 Year
  Sex: Female

DRUGS (6)
  1. PREMARIN [Suspect]
  2. ESTRACE [Suspect]
  3. ESTRATEST [Suspect]
  4. LOESTRIN 1.5/30 [Suspect]
  5. MEDROXYPROGESTERONE [Suspect]
  6. PROVERA [Suspect]

REACTIONS (1)
  - BREAST CANCER [None]
